FAERS Safety Report 7786058-0 (Version None)
Quarter: 2011Q3

REPORT INFORMATION
  Report Type: 
  Country: None (occurrence: None)
  Receive Date: 20110929
  Receipt Date: 20110916
  Transmission Date: 20111222
  Serious: Yes (Hospitalization, Other)
  Sender: FDA-Public Use
  Company Number: US-ELI_LILLY_AND_COMPANY-US201108003939

PATIENT
  Age: 93 Year
  Sex: Female

DRUGS (14)
  1. VITAMIN TAB [Concomitant]
  2. LUTEIN [Concomitant]
  3. CYMBALTA [Concomitant]
     Indication: DEPRESSION
     Dosage: 30 MG, BID
  4. METOPROLOL TARTRATE [Concomitant]
     Dosage: 100 MG, BID
  5. ARICEPT [Concomitant]
     Dosage: 10 MG, UNK
  6. SODIUM CHLORIDE [Concomitant]
  7. ALBUTEROL [Concomitant]
  8. FISH OIL [Concomitant]
  9. CALCIUM CARBONATE [Concomitant]
  10. FORTEO [Suspect]
     Indication: OSTEOPOROSIS
     Dosage: 20 UG, QD
     Route: 065
     Dates: start: 20101201
  11. LASIX [Concomitant]
     Dosage: UNK
  12. AMIODARONE HCL [Concomitant]
     Dosage: 200 MG, QD
  13. NAMENDA [Concomitant]
     Dosage: 10 MG, BID
  14. FERROUS SULFATE TAB [Concomitant]

REACTIONS (11)
  - PULMONARY OEDEMA [None]
  - FALL [None]
  - CONTUSION [None]
  - CARDIAC FAILURE CONGESTIVE [None]
  - PNEUMONIA [None]
  - LUNG INFECTION [None]
  - DEMENTIA ALZHEIMER'S TYPE [None]
  - FEELING ABNORMAL [None]
  - AGEUSIA [None]
  - ORTHOSTATIC HYPOTENSION [None]
  - GAIT DISTURBANCE [None]
